FAERS Safety Report 19947731 (Version 1)
Quarter: 2021Q4

REPORT INFORMATION
  Report Type: Spontaneous
  Country: DE (occurrence: DE)
  Receive Date: 20211012
  Receipt Date: 20211012
  Transmission Date: 20220303
  Serious: Yes (Hospitalization)
  Sender: FDA-Public Use
  Company Number: DE-ADRED-06002-01

PATIENT
  Age: 85 Year
  Sex: Male
  Weight: 57 kg

DRUGS (4)
  1. FUROSEMIDE [Suspect]
     Active Substance: FUROSEMIDE
     Indication: Product used for unknown indication
     Dosage: 20 MG, 1-1-0-0, TABLET
     Route: 048
  2. FENOTEROL HYDROBROMIDE\IPRATROPIUM BROMIDE [Concomitant]
     Active Substance: FENOTEROL HYDROBROMIDE\IPRATROPIUM BROMIDE
     Dosage: IF NECESSARY, METERED DOSE INHALER
     Route: 055
  3. BECLOMETHASONE DIPROPIONATE\FORMOTEROL FUMARATE\GLYCOPYRROLATE [Concomitant]
     Active Substance: BECLOMETHASONE DIPROPIONATE\FORMOTEROL FUMARATE\GLYCOPYRROLATE
     Dosage: 9/5/87 ?G, 2-0-2-0, METERED DOSE INHALER
     Route: 055
  4. ALLOPURINOL [Concomitant]
     Active Substance: ALLOPURINOL
     Dosage: 150 MG, 1-0-0-0, TABLET
     Route: 048

REACTIONS (3)
  - Gastroenteritis [Unknown]
  - Dehydration [Unknown]
  - Renal impairment [Unknown]
